FAERS Safety Report 24831743 (Version 1)
Quarter: 2025Q1

REPORT INFORMATION
  Report Type: Spontaneous
  Country: FR (occurrence: FR)
  Receive Date: 20250110
  Receipt Date: 20250110
  Transmission Date: 20250409
  Serious: Yes (Hospitalization, Other)
  Sender: MERCK
  Company Number: None

PATIENT
  Age: 80 Year
  Sex: Male
  Weight: 77 kg

DRUGS (6)
  1. KEYTRUDA [Suspect]
     Active Substance: PEMBROLIZUMAB
     Indication: Lung neoplasm malignant
     Route: 042
     Dates: start: 20240115
  2. ALIMTA [Suspect]
     Active Substance: PEMETREXED DISODIUM
     Indication: Lung neoplasm malignant
     Route: 042
     Dates: start: 20240115, end: 20240613
  3. TELMISARTAN [Concomitant]
     Active Substance: TELMISARTAN
  4. ATORVASTATIN [Concomitant]
     Active Substance: ATORVASTATIN
  5. LERCANIDIPINE HYDROCHLORIDE [Concomitant]
     Active Substance: LERCANIDIPINE HYDROCHLORIDE
  6. ASPIRIN [Concomitant]
     Active Substance: ASPIRIN

REACTIONS (3)
  - Acute kidney injury [Recovered/Resolved]
  - Anaemia [Not Recovered/Not Resolved]
  - Neutropenia [Recovered/Resolved]

NARRATIVE: CASE EVENT DATE: 20240605
